FAERS Safety Report 7957695-5 (Version None)
Quarter: 2011Q4

REPORT INFORMATION
  Report Type: 
  Country: None (occurrence: None)
  Receive Date: 20111205
  Receipt Date: 20111129
  Transmission Date: 20120403
  Serious: Yes (Other)
  Sender: FDA-Public Use
  Company Number: PHHY2011DE104999

PATIENT
  Age: 59 Year
  Sex: Male

DRUGS (2)
  1. ZOMETA [Suspect]
     Dosage: 1 DF, UNK
     Route: 042
     Dates: start: 20111116
  2. ZOMETA [Suspect]
     Indication: PROSTATE CANCER
     Dosage: 1 DF, QW4
     Route: 042
     Dates: start: 20111019

REACTIONS (3)
  - JAW DISORDER [None]
  - PAIN IN JAW [None]
  - INFLUENZA LIKE ILLNESS [None]
